FAERS Safety Report 13931382 (Version 3)
Quarter: 2020Q3

REPORT INFORMATION
  Report Type: Spontaneous
  Country: JP (occurrence: JP)
  Receive Date: 20170903
  Receipt Date: 20200923
  Transmission Date: 20201102
  Serious: Yes (Other)
  Sender: FDA-Public Use
  Company Number: JP-ROCHE-1975173

PATIENT
  Age: 71 Year
  Sex: Female

DRUGS (2)
  1. LUCENTIS [Suspect]
     Active Substance: RANIBIZUMAB
     Indication: PATHOLOGIC MYOPIA
     Route: 031
  2. LUCENTIS [Suspect]
     Active Substance: RANIBIZUMAB
     Indication: CHOROIDAL NEOVASCULARISATION
     Route: 031

REACTIONS (2)
  - Serous retinal detachment [Unknown]
  - Visual acuity reduced [Unknown]
